FAERS Safety Report 11780780 (Version 2)
Quarter: 2016Q1

REPORT INFORMATION
  Report Type: Spontaneous
  Country: US (occurrence: US)
  Receive Date: 20151126
  Receipt Date: 20160108
  Transmission Date: 20160525
  Serious: No
  Sender: FDA-Public Use
  Company Number: US-009507513-1511USA006367

PATIENT
  Sex: Female

DRUGS (1)
  1. SUCCINYLCHLORIDE INJECTION [Suspect]
     Active Substance: SUCCINYLCHOLINE
     Dosage: UNK

REACTIONS (1)
  - Drug hypersensitivity [Unknown]
